FAERS Safety Report 4815014-7 (Version None)
Quarter: 2005Q4

REPORT INFORMATION
  Report Type: 
  Country: None (occurrence: None)
  Receive Date: 20051026
  Receipt Date: 20051011
  Transmission Date: 20060501
  Serious: Yes (Hospitalization)
  Sender: FDA-Public Use
  Company Number: USA0510110658

PATIENT
  Age: 77 Year
  Sex: Male
  Weight: 55 kg

DRUGS (3)
  1. ZYPREXA [Suspect]
     Indication: SCHIZOPHRENIA
  2. DIGOXIN [Concomitant]
  3. WARFARIN [Concomitant]

REACTIONS (3)
  - ANEURYSM [None]
  - CARDIAC OPERATION [None]
  - DIABETES MELLITUS [None]
